FAERS Safety Report 12823614 (Version 1)
Quarter: 2016Q4

REPORT INFORMATION
  Report Type: Spontaneous
  Country: US (occurrence: US)
  Receive Date: 20161007
  Receipt Date: 20161007
  Transmission Date: 20170207
  Serious: No
  Sender: FDA-Public Use
  Company Number: US-TEVA-692716ACC

PATIENT
  Sex: Female

DRUGS (2)
  1. PARAGARD T 380A [Suspect]
     Active Substance: COPPER
     Indication: CONTRACEPTION
     Dates: end: 20160908
  2. NO DRUG NAME [Concomitant]

REACTIONS (4)
  - Complication associated with device [Recovered/Resolved]
  - Embedded device [Recovered/Resolved]
  - Menorrhagia [Unknown]
  - Pain [Unknown]
